FAERS Safety Report 5328265-2 (Version None)
Quarter: 2007Q2

REPORT INFORMATION
  Report Type: 
  Country: None (occurrence: None)
  Receive Date: 20070515
  Receipt Date: 20070515
  Transmission Date: 20071010
  Serious: Yes (Hospitalization)
  Sender: FDA-Public Use
  Company Number: None

PATIENT
  Sex: Male
  Weight: 72.1 kg

DRUGS (3)
  1. FLUOROURACIL [Suspect]
     Indication: TONGUE NEOPLASM MALIGNANT STAGE UNSPECIFIED
     Dosage: 600 MG/M2 IV QD
     Route: 042
     Dates: start: 20070415, end: 20070420
  2. HYDREA [Suspect]
     Indication: TONGUE NEOPLASM MALIGNANT STAGE UNSPECIFIED
     Dosage: 500MG PO BID
     Route: 048
     Dates: start: 20070415, end: 20070420
  3. IRESSA [Suspect]
     Dosage: 250MG PO QD
     Route: 048
     Dates: start: 20070416, end: 20070428

REACTIONS (4)
  - AXILLARY VEIN THROMBOSIS [None]
  - CATHETER RELATED COMPLICATION [None]
  - DEEP VEIN THROMBOSIS [None]
  - SUBCLAVIAN VEIN THROMBOSIS [None]
